FAERS Safety Report 7966450-1 (Version None)
Quarter: 2011Q4

REPORT INFORMATION
  Report Type: 
  Country: None (occurrence: None)
  Receive Date: 20111208
  Receipt Date: 20111129
  Transmission Date: 20120403
  Serious: Yes (Other)
  Sender: FDA-Public Use
  Company Number: CA-ASTRAZENECA-2011SE72126

PATIENT
  Age: 71 Year
  Sex: Male

DRUGS (6)
  1. FLOMAX [Concomitant]
  2. AVODART [Concomitant]
  3. TRAZODONE HCL [Concomitant]
  4. SEROQUEL [Suspect]
     Indication: DEMENTIA ALZHEIMER'S TYPE
     Dosage: 12.5 MG IN THE MORNING,25 MG IN SUPPER AND 25 MG AT BEDTIME
     Route: 048
     Dates: start: 20111101
  5. CLONAZEPAM [Concomitant]
  6. EXELON [Concomitant]
     Route: 065

REACTIONS (3)
  - SEXUAL DYSFUNCTION [None]
  - OFF LABEL USE [None]
  - LIBIDO INCREASED [None]
